FAERS Safety Report 21422625 (Version 2)
Quarter: 2022Q4

REPORT INFORMATION
  Report Type: Spontaneous
  Country: FR (occurrence: None)
  Receive Date: 20221007
  Receipt Date: 20221012
  Transmission Date: 20230112
  Serious: Yes (Life-Threatening, Hospitalization, Other)
  Sender: FDA-Public Use
  Company Number: 2022A336063

PATIENT
  Age: 22780 Day
  Sex: Male
  Weight: 90 kg

DRUGS (3)
  1. DAPAGLIFLOZIN [Suspect]
     Active Substance: DAPAGLIFLOZIN
     Indication: Type 2 diabetes mellitus
     Route: 048
     Dates: start: 20210914, end: 20220715
  2. IRBESARTAN [Concomitant]
     Active Substance: IRBESARTAN
     Dosage: 150
     Route: 065
     Dates: start: 2019
  3. METFORMIN HYDROCHLORIDE [Concomitant]
     Active Substance: METFORMIN HYDROCHLORIDE
     Dosage: 850 TWO TIMES A DAY
     Route: 065
     Dates: start: 2014

REACTIONS (2)
  - Acute kidney injury [Recovered/Resolved]
  - Tubulointerstitial nephritis [Recovered/Resolved]

NARRATIVE: CASE EVENT DATE: 20220715
